FAERS Safety Report 14641767 (Version 4)
Quarter: 2018Q2

REPORT INFORMATION
  Report Type: Report from Study
  Country: US (occurrence: US)
  Receive Date: 20180315
  Receipt Date: 20180416
  Transmission Date: 20180711
  Serious: Yes (Hospitalization, Other)
  Sender: FDA-Public Use
  Company Number: US-GILEAD-2018-0325961

PATIENT
  Age: 60 Year
  Sex: Female

DRUGS (2)
  1. AMBRISENTAN [Suspect]
     Active Substance: AMBRISENTAN
     Indication: PULMONARY ARTERIAL HYPERTENSION
     Dosage: 5 MG, QD
     Route: 065
     Dates: start: 20100628
  2. ADEMPAS [Concomitant]
     Active Substance: RIOCIGUAT

REACTIONS (8)
  - Clostridium difficile infection [Not Recovered/Not Resolved]
  - Pneumonia [Unknown]
  - Myocardial infarction [Unknown]
  - Intentional dose omission [Not Recovered/Not Resolved]
  - Atrial fibrillation [Unknown]
  - Ill-defined disorder [Unknown]
  - Infection [Unknown]
  - Syncope [Unknown]

NARRATIVE: CASE EVENT DATE: 20180310
